FAERS Safety Report 17700382 (Version 1)
Quarter: 2020Q2

REPORT INFORMATION
  Report Type: Spontaneous
  Country: US (occurrence: US)
  Receive Date: 20200423
  Receipt Date: 20200423
  Transmission Date: 20200714
  Serious: No
  Sender: FDA-Public Use
  Company Number: NVSC2020US108526

PATIENT
  Age: 46 Year
  Sex: Male

DRUGS (1)
  1. GLATOPA [Suspect]
     Active Substance: GLATIRAMER ACETATE
     Indication: MULTIPLE SCLEROSIS
     Dosage: 40 MG, Q72H
     Route: 030
     Dates: start: 20200421

REACTIONS (9)
  - Feeling hot [Unknown]
  - Dyspnoea [Unknown]
  - Dysgeusia [Unknown]
  - Injection site discolouration [Unknown]
  - Injection site mass [Unknown]
  - Dizziness [Unknown]
  - Needle issue [Unknown]
  - Flushing [Unknown]
  - Chills [Unknown]
